FAERS Safety Report 16354659 (Version 1)
Quarter: 2019Q2

REPORT INFORMATION
  Report Type: Spontaneous
  Country: GB (occurrence: GB)
  Receive Date: 20190524
  Receipt Date: 20190524
  Transmission Date: 20190711
  Serious: Yes (Disabling, Other)
  Sender: FDA-Public Use
  Company Number: GB-BAUSCH-BL-2019-014973

PATIENT
  Age: 37 Year
  Sex: Female
  Weight: 58 kg

DRUGS (2)
  1. PREDNISOLONE. [Suspect]
     Active Substance: PREDNISOLONE
     Indication: PRURITUS GENERALISED
     Route: 048
     Dates: start: 20190417, end: 20190421
  2. NEOCLARITYN [Suspect]
     Active Substance: DESLORATADINE
     Indication: PRURITUS GENERALISED
     Route: 048
     Dates: start: 20190425, end: 20190426

REACTIONS (2)
  - Condition aggravated [Unknown]
  - Rash [Not Recovered/Not Resolved]

NARRATIVE: CASE EVENT DATE: 20190425
